FAERS Safety Report 9356484 (Version 2)
Quarter: 2013Q3

REPORT INFORMATION
  Report Type: Spontaneous
  Country: US (occurrence: US)
  Receive Date: 20130619
  Receipt Date: 20130702
  Transmission Date: 20140515
  Serious: Yes (Hospitalization, Other)
  Sender: FDA-Public Use
  Company Number: US-BAXTER-2013BAX022671

PATIENT
  Age: 93 Year
  Sex: Female

DRUGS (3)
  1. DIANEAL LOW CALCIUM [Suspect]
     Indication: PERITONEAL DIALYSIS
     Route: 033
  2. DIANEAL LOW CALCIUM [Suspect]
     Indication: PERITONEAL DIALYSIS
     Route: 033
  3. POTASSIUM [Suspect]
     Indication: HYPOKALAEMIA
     Route: 048

REACTIONS (3)
  - Hyperkalaemia [Recovered/Resolved]
  - Abdominal pain upper [Recovered/Resolved]
  - Hypokalaemia [Recovered/Resolved]
